FAERS Safety Report 19767340 (Version 7)
Quarter: 2022Q1

REPORT INFORMATION
  Report Type: Report from Study
  Country: US (occurrence: US)
  Receive Date: 20210831
  Receipt Date: 20220204
  Transmission Date: 20220423
  Serious: Yes (Other)
  Sender: FDA-Public Use
  Company Number: US-GLAXOSMITHKLINE-US2021AMR180629

PATIENT
  Age: 66 Year
  Sex: Female

DRUGS (6)
  1. BELANTAMAB MAFODOTIN [Suspect]
     Active Substance: BELANTAMAB MAFODOTIN
     Indication: Plasma cell myeloma
     Dosage: UNK
     Route: 042
     Dates: start: 20210525
  2. BELANTAMAB MAFODOTIN [Suspect]
     Active Substance: BELANTAMAB MAFODOTIN
     Dosage: UNK
     Route: 042
     Dates: start: 202104
  3. VELCADE [Suspect]
     Active Substance: BORTEZOMIB
     Indication: Inflammation
     Dosage: UNK
     Dates: start: 2014
  4. VELCADE [Suspect]
     Active Substance: BORTEZOMIB
     Indication: Chemotherapy
     Dosage: UNK
     Dates: start: 202104
  5. COVID 19 VACCINE [Concomitant]
     Indication: COVID-19 prophylaxis
     Dosage: UNK
     Dates: start: 202105
  6. DEXAMETHASONE [Concomitant]
     Active Substance: DEXAMETHASONE
     Indication: Inflammation
     Dosage: UNK
     Dates: start: 2014

REACTIONS (13)
  - Neuropathy peripheral [Recovering/Resolving]
  - Visual impairment [Not Recovered/Not Resolved]
  - Nausea [Recovered/Resolved]
  - Fatigue [Unknown]
  - Diarrhoea [Recovered/Resolved]
  - Ill-defined disorder [Not Recovered/Not Resolved]
  - Nasopharyngitis [Recovered/Resolved]
  - Vision blurred [Not Recovered/Not Resolved]
  - Lacrimation increased [Unknown]
  - Asthenia [Unknown]
  - Somnolence [Unknown]
  - Hypersensitivity [Unknown]
  - Remission not achieved [Not Recovered/Not Resolved]

NARRATIVE: CASE EVENT DATE: 20210401
